FAERS Safety Report 6287112-5 (Version None)
Quarter: 2009Q3

REPORT INFORMATION
  Report Type: 
  Country: None (occurrence: None)
  Receive Date: 20090724
  Receipt Date: 20090708
  Transmission Date: 20100115
  Serious: Yes (Hospitalization, Other)
  Sender: FDA-Public Use
  Company Number: A-JP2007-14517

PATIENT
  Age: 25 Year
  Sex: Female
  Weight: 54 kg

DRUGS (9)
  1. TRACLEER [Suspect]
     Indication: PULMONARY HYPERTENSION
     Dosage: 31.25 MG, BID, ORAL, 62.5 MG, BID, ORAL, 125 MG, BID, ORAL, 62.5 MG, BID, ORAL
     Route: 048
     Dates: start: 20060131, end: 20060213
  2. TRACLEER [Suspect]
     Indication: PULMONARY HYPERTENSION
     Dosage: 31.25 MG, BID, ORAL, 62.5 MG, BID, ORAL, 125 MG, BID, ORAL, 62.5 MG, BID, ORAL
     Route: 048
     Dates: start: 20060214, end: 20060703
  3. TRACLEER [Suspect]
     Indication: PULMONARY HYPERTENSION
     Dosage: 31.25 MG, BID, ORAL, 62.5 MG, BID, ORAL, 125 MG, BID, ORAL, 62.5 MG, BID, ORAL
     Route: 048
     Dates: start: 20060704, end: 20070612
  4. TRACLEER [Suspect]
     Indication: PULMONARY HYPERTENSION
     Dosage: 31.25 MG, BID, ORAL, 62.5 MG, BID, ORAL, 125 MG, BID, ORAL, 62.5 MG, BID, ORAL
     Route: 048
     Dates: start: 20070613, end: 20070615
  5. BERAPROST SODIUM (BERAPROST SODIUM) [Concomitant]
  6. ALUMINIUM BIS(ACETYLSALICYLATE) (ALUMINIUM BIS(ACETYLSALICYLATE) ) [Concomitant]
  7. POTASSIUM CITRATE W/SODIUM CITRATE (SODIUM CITRATE, POTASSIUM CITRATE) [Concomitant]
  8. ALLOPURINOL [Concomitant]
  9. OXYGEN (OXYGEN) [Concomitant]

REACTIONS (6)
  - CONDITION AGGRAVATED [None]
  - HAEMATEMESIS [None]
  - HAEMOPTYSIS [None]
  - HYPERBILIRUBINAEMIA [None]
  - HYPOXIA [None]
  - PULMONARY CONGESTION [None]
